FAERS Safety Report 12334963 (Version 2)
Quarter: 2016Q2

REPORT INFORMATION
  Report Type: Spontaneous
  Country: US (occurrence: US)
  Receive Date: 20160504
  Receipt Date: 20160617
  Transmission Date: 20160815
  Serious: Yes (Other)
  Sender: FDA-Public Use
  Company Number: US-PFIZER INC-2016223842

PATIENT
  Age: 25 Year
  Sex: Female

DRUGS (1)
  1. ROBITUSSIN SEVERE MULTI-SYMPTOM COUGH COLD FLU [Suspect]
     Active Substance: ACETAMINOPHEN\DEXTROMETHORPHAN HYDROBROMIDE\GUAIFENESIN\PHENYLEPHRINE HYDROCHLORIDE
     Indication: COUGH
     Dosage: UNK
     Route: 048
     Dates: start: 20160418, end: 20160418

REACTIONS (9)
  - Auricular swelling [Recovering/Resolving]
  - Urticaria [Unknown]
  - Rash [Recovering/Resolving]
  - Pyrexia [Recovered/Resolved]
  - Product odour abnormal [Recovered/Resolved]
  - Swelling face [Recovering/Resolving]
  - Drug hypersensitivity [Unknown]
  - Erythema [Recovering/Resolving]
  - Peripheral swelling [Unknown]

NARRATIVE: CASE EVENT DATE: 20160418
